FAERS Safety Report 9515733 (Version 1)
Quarter: 2013Q3

REPORT INFORMATION
  Report Type: Spontaneous
  Country: JP (occurrence: None)
  Receive Date: 20130909
  Receipt Date: 20130909
  Transmission Date: 20140515
  Serious: Yes (Life-Threatening, Other)
  Sender: FDA-Public Use
  Company Number: CO-OR-JP-2013-039

PATIENT
  Age: 76 Year
  Sex: Female

DRUGS (2)
  1. PREDNISOLONE (PREDNISOLONE) [Suspect]
     Indication: ARTHRITIS
     Dosage: 4 W
  2. METHOTREXATE [Concomitant]

REACTIONS (2)
  - Bronchopulmonary aspergillosis [None]
  - Pneumocystis jirovecii pneumonia [None]
